FAERS Safety Report 6812042-7 (Version None)
Quarter: 2010Q3

REPORT INFORMATION
  Report Type: 
  Country: None (occurrence: None)
  Receive Date: 20100701
  Receipt Date: 20100623
  Transmission Date: 20110219
  Serious: Yes (Other)
  Sender: FDA-Public Use
  Company Number: PHHO2010AU09673

PATIENT
  Sex: Male
  Weight: 82.9 kg

DRUGS (1)
  1. CO-DIOVAN T32564+ [Suspect]
     Indication: HYPERTENSION
     Dosage: 80 MG/ 12.5 MG
     Route: 048
     Dates: start: 20100325, end: 20100526

REACTIONS (7)
  - CHEST PAIN [None]
  - CHROMATURIA [None]
  - DIZZINESS [None]
  - HYPERHIDROSIS [None]
  - INFLUENZA [None]
  - LABORATORY TEST ABNORMAL [None]
  - VOMITING [None]
